FAERS Safety Report 15618578 (Version 2)
Quarter: 2018Q4

REPORT INFORMATION
  Report Type: Spontaneous
  Country: US (occurrence: US)
  Receive Date: 20181114
  Receipt Date: 20181219
  Transmission Date: 20190205
  Serious: Yes (Other)
  Sender: FDA-Public Use
  Company Number: US-009507513-1811USA001012

PATIENT
  Age: 16 Year
  Sex: Female
  Weight: 41.91 kg

DRUGS (1)
  1. NEXPLANON [Suspect]
     Active Substance: ETONOGESTREL
     Indication: CONTRACEPTION
     Dosage: 1 ROD, UNK, LEFT ARM
     Route: 059
     Dates: start: 20180319, end: 20181203

REACTIONS (7)
  - Device dislocation [Recovered/Resolved]
  - General anaesthesia [Unknown]
  - Complication associated with device [Recovered/Resolved]
  - Complication associated with device [Recovered/Resolved]
  - Metrorrhagia [Unknown]
  - Surgery [Unknown]
  - Pain in extremity [Unknown]

NARRATIVE: CASE EVENT DATE: 2018
